FAERS Safety Report 23528381 (Version 2)
Quarter: 2024Q2

REPORT INFORMATION
  Report Type: Spontaneous
  Country: IT (occurrence: IT)
  Receive Date: 20240215
  Receipt Date: 20240413
  Transmission Date: 20240716
  Serious: Yes (Other)
  Sender: FDA-Public Use
  Company Number: None

PATIENT
  Age: 87 Year
  Sex: Female

DRUGS (5)
  1. ELIQUIS [Suspect]
     Active Substance: APIXABAN
     Indication: Atrial fibrillation
     Dosage: ELIQUIS*60CPR RIV 5MG. DOSAGE SCHEDULE: 2 CPR PER DAY
     Route: 048
     Dates: start: 202008, end: 202206
  2. LASIX [Concomitant]
     Active Substance: FUROSEMIDE
     Indication: Renal failure
     Dosage: LASIX*30CPR 25MG. DOSAGE SCHEDULE: 1 CPR PER DAY
     Route: 048
  3. CARDURA [Concomitant]
     Active Substance: DOXAZOSIN MESYLATE
     Indication: Hypertension
     Dosage: CARDURA*30CPR DIV 2MG . DOSAGE SCHEDULE: 1 CPR PER DAY
     Route: 048
  4. METOPROLOL FUMARATE [Concomitant]
     Active Substance: METOPROLOL FUMARATE
     Indication: Hypertension
     Dosage: LOPRESOR*28CPR 200MG RP. DOSAGE SCHEDULE: 1 CPR PER DAY
     Route: 048
  5. RAMIPRIL [Concomitant]
     Active Substance: RAMIPRIL
     Indication: Hypertension
     Dosage: UNIPRIL*28CPR DIV 10MG. DOSAGE SCHEDULE: 1 CPR PER DAY
     Route: 048

REACTIONS (1)
  - Chronic kidney disease [Recovering/Resolving]

NARRATIVE: CASE EVENT DATE: 20220501
